FAERS Safety Report 16537765 (Version 2)
Quarter: 2019Q3

REPORT INFORMATION
  Report Type: Spontaneous
  Country: CA (occurrence: CA)
  Receive Date: 20190708
  Receipt Date: 20190909
  Transmission Date: 20191004
  Serious: Yes (Other)
  Sender: FDA-Public Use
  Company Number: CA-CELLTRION INC.-2017CA005456

PATIENT

DRUGS (26)
  1. INFLECTRA [Suspect]
     Active Substance: INFLIXIMAB-DYYB
     Dosage: 500 MG, Q4WEEKS
     Route: 042
  2. METRONIDAZOLE. [Suspect]
     Active Substance: METRONIDAZOLE
     Dosage: 500 MG, 2X/DAY
     Route: 042
  3. VENLAFAXINE HCL [Suspect]
     Active Substance: VENLAFAXINE HYDROCHLORIDE
     Dosage: 100 MG, DAILY
     Route: 048
  4. HYDROCHOROTHIAZIDE [Suspect]
     Active Substance: HYDROCHLOROTHIAZIDE
     Dosage: 2.50 MG, DAILY
     Route: 048
  5. MIDAZOLAM [Suspect]
     Active Substance: MIDAZOLAM HYDROCHLORIDE
     Indication: SEDATION
     Dosage: 2.5 MG, UNK
     Route: 042
     Dates: start: 20170116
  6. MODULON [Concomitant]
     Active Substance: TRIMEBUTINE MALEATE
     Dosage: UNK
     Route: 048
  7. MODULON [Concomitant]
     Active Substance: TRIMEBUTINE MALEATE
     Dosage: 1 DF, 2X/DAY
     Route: 048
  8. HYDROCORTISONE. [Concomitant]
     Active Substance: HYDROCORTISONE
     Indication: PREMEDICATION
     Dosage: 100 MG, UNK
     Route: 042
     Dates: start: 20190611, end: 20190611
  9. INFLECTRA [Suspect]
     Active Substance: INFLIXIMAB-DYYB
     Dosage: 420 MG, (5MG/KG) EVERY 4 WEEKS
     Route: 042
     Dates: start: 20181128
  10. ZOPICLONE [Concomitant]
     Active Substance: ZOPICLONE
     Dosage: 7.5 MG, ONCE A DAY, AT BEDTIME
     Route: 048
  11. CORTIFOAM [Concomitant]
     Active Substance: HYDROCORTISONE ACETATE
     Indication: PAIN
     Dosage: UNK, TWICE A DAY
     Route: 054
  12. ACETAMINOPHEN. [Concomitant]
     Active Substance: ACETAMINOPHEN
     Indication: PREMEDICATION
     Dosage: 650 MG, UNK
     Route: 048
     Dates: start: 20190611, end: 20190611
  13. INFLECTRA [Suspect]
     Active Substance: INFLIXIMAB-DYYB
     Dosage: 600 MG, EVERY 4 WEEKS
     Route: 042
     Dates: start: 20170206, end: 20180711
  14. INFLECTRA [Suspect]
     Active Substance: INFLIXIMAB-DYYB
     Dosage: 420 MG, (5MG/KG) EVERY 4 WEEKS
     Route: 042
     Dates: start: 20190514
  15. PREDNISONE. [Concomitant]
     Active Substance: PREDNISONE
     Dosage: 20 MG, ONCE A DAY (TAPER)
     Route: 048
  16. LEVOTHYROXINE. [Concomitant]
     Active Substance: LEVOTHYROXINE
     Dosage: 0.05 MG, ONCE A DAY
     Route: 048
  17. RANITIDINE. [Concomitant]
     Active Substance: RANITIDINE
     Dosage: 150 MG, DAILY
  18. PEG [PREGABALIN] [Concomitant]
     Dosage: UNK
  19. INFLECTRA [Suspect]
     Active Substance: INFLIXIMAB-DYYB
     Indication: CROHN^S DISEASE
     Dosage: 500 MG, INDUCTION 0, 2 WEEKS AND THEN MAINTENANCE EVERY 8 WEEKS
     Route: 042
     Dates: start: 20170206
  20. INFLECTRA [Suspect]
     Active Substance: INFLIXIMAB-DYYB
     Dosage: 420 MG, (5MG/KG) EVERY 4 WEEKS
     Route: 042
     Dates: start: 20180808
  21. INFLECTRA [Suspect]
     Active Substance: INFLIXIMAB-DYYB
     Dosage: 420 MG, (5MG/KG) EVERY 4 WEEKS
     Route: 042
     Dates: start: 20181224
  22. CEFTRIAXONE SODIUM. [Suspect]
     Active Substance: CEFTRIAXONE SODIUM
     Dosage: 1 G, 2X/DAY
     Route: 042
  23. MODULON [Concomitant]
     Active Substance: TRIMEBUTINE MALEATE
     Dosage: UNK, TWICE A DAY
     Route: 048
  24. INFLECTRA [Suspect]
     Active Substance: INFLIXIMAB-DYYB
     Dosage: 420 MG, (5MG/KG) EVERY 4 WEEKS
     Route: 042
     Dates: start: 20190611
  25. GABAPENTIN. [Suspect]
     Active Substance: GABAPENTIN
     Dosage: 1.8 G, DAILY (6 TABLETS DAILY - 2 TABLETS AM, 1 TABLET PM AND 3 TABLETS AT NIGHT)
     Route: 048
  26. CORTIFOAM [Concomitant]
     Active Substance: HYDROCORTISONE ACETATE
     Indication: MUSCLE SPASMS
     Dosage: UNK, BID

REACTIONS (10)
  - Arthralgia [Unknown]
  - Anal fissure [Recovering/Resolving]
  - Alopecia [Recovering/Resolving]
  - Blood pressure decreased [Unknown]
  - Myalgia [Unknown]
  - Fibromyalgia [Unknown]
  - Diarrhoea [Unknown]
  - Abscess [Unknown]
  - Fistula [Unknown]
  - Constipation [Unknown]

NARRATIVE: CASE EVENT DATE: 2017
